FAERS Safety Report 14038075 (Version 1)
Quarter: 2017Q4

REPORT INFORMATION
  Report Type: Spontaneous
  Country: US (occurrence: None)
  Receive Date: 20171004
  Receipt Date: 20171004
  Transmission Date: 20180321
  Serious: No
  Sender: FDA-Public Use
  Company Number: None

PATIENT
  Sex: Female
  Weight: 59.87 kg

DRUGS (3)
  1. FORTEO [Suspect]
     Active Substance: TERIPARATIDE
     Indication: GASTROINTESTINAL INFLAMMATION
     Route: 058
     Dates: start: 201707
  2. FORTEO [Suspect]
     Active Substance: TERIPARATIDE
     Indication: OSTEOPOROSIS
     Route: 058
     Dates: start: 201707
  3. FORTEO [Suspect]
     Active Substance: TERIPARATIDE
     Indication: BODY HEIGHT DECREASED
     Route: 058
     Dates: start: 201707

REACTIONS (2)
  - Dizziness [None]
  - Balance disorder [None]
